FAERS Safety Report 18312201 (Version 1)
Quarter: 2020Q3

REPORT INFORMATION
  Report Type: Spontaneous
  Country: US (occurrence: US)
  Receive Date: 20200925
  Receipt Date: 20200925
  Transmission Date: 20201103
  Serious: No
  Sender: FDA-Public Use
  Company Number: US-TEVA-2020-US-1831367

PATIENT
  Age: 41 Year
  Sex: Male

DRUGS (1)
  1. BUPRENORPHINE TEVA [Suspect]
     Active Substance: BUPRENORPHINE
     Route: 065
     Dates: start: 202007

REACTIONS (3)
  - Product substitution issue [Unknown]
  - Therapeutic product effect incomplete [Unknown]
  - Drug screen negative [Unknown]

NARRATIVE: CASE EVENT DATE: 2020
